FAERS Safety Report 9489954 (Version 2)
Quarter: 2014Q1

REPORT INFORMATION
  Report Type: Spontaneous
  Country: US (occurrence: US)
  Receive Date: 20130829
  Receipt Date: 20140130
  Transmission Date: 20141002
  Serious: Yes (Hospitalization)
  Sender: FDA-Public Use
  Company Number: US-B.I. PHARMACEUTICALS,INC./RIDGEFIELD-2013-BI-26527BP

PATIENT
  Sex: Female
  Weight: 95.25 kg

DRUGS (13)
  1. PRADAXA [Suspect]
     Indication: ATRIAL FIBRILLATION
     Dosage: 300 MG
     Dates: start: 20120516, end: 20120829
  2. NIFEDIPINE [Concomitant]
  3. ZYRTEC [Concomitant]
  4. ATROVENT [Concomitant]
  5. ALBUTEROL NUBULIZERS [Concomitant]
  6. ZOCOR [Concomitant]
  7. METFORMIN [Concomitant]
  8. AMIODARONE [Concomitant]
  9. DILTIAZEM [Concomitant]
  10. OMEPRAZOLE [Concomitant]
  11. POTASSIUM [Concomitant]
  12. LASIX [Concomitant]
  13. OXYGEN [Concomitant]
     Indication: CHRONIC OBSTRUCTIVE PULMONARY DISEASE

REACTIONS (2)
  - Gastrointestinal haemorrhage [Unknown]
  - Anaemia [Unknown]
